FAERS Safety Report 7531124-8 (Version None)
Quarter: 2011Q2

REPORT INFORMATION
  Report Type: 
  Country: None (occurrence: None)
  Receive Date: 20110526
  Receipt Date: 20110511
  Transmission Date: 20111010
  Serious: Yes (Hospitalization)
  Sender: FDA-Public Use
  Company Number: DSA_46713_2011

PATIENT
  Age: 82 Year
  Sex: Female

DRUGS (11)
  1. ENALAPRIL MALEATE [Suspect]
     Indication: ESSENTIAL HYPERTENSION
     Dosage: (5 MG QD ORAL)
     Route: 048
  2. ACETYLCYSTEINE [Concomitant]
  3. DIAZEPAM [Concomitant]
  4. IPRAMOL [Concomitant]
  5. DIAZEPAN [Concomitant]
  6. PAMOL [Concomitant]
  7. ZOLPIDEM TARTRATE [Concomitant]
  8. IMOVANE [Concomitant]
  9. ESCITALOPRAM OXALATE [Suspect]
     Indication: PRODUCT USED FOR UNKNOWN INDICATION
     Dosage: (DF ORAL)
     Route: 048
     Dates: end: 20100812
  10. COCILLANA-ETYFIN [Concomitant]
  11. FENANTOIN [Concomitant]

REACTIONS (4)
  - HYPONATRAEMIA [None]
  - ASTHENIA [None]
  - GENERAL PHYSICAL HEALTH DETERIORATION [None]
  - FATIGUE [None]
